FAERS Safety Report 18525207 (Version 1)
Quarter: 2020Q4

REPORT INFORMATION
  Report Type: Other
  Country: DE (occurrence: DE)
  Receive Date: 20201120
  Receipt Date: 20201120
  Transmission Date: 20210114
  Serious: No
  Sender: FDA-Public Use
  Company Number: DE-ROCHE-2602205

PATIENT
  Age: 37 Year
  Sex: Female
  Weight: 77 kg

DRUGS (21)
  1. OCRELIZUMAB. [Suspect]
     Active Substance: OCRELIZUMAB
     Route: 042
     Dates: start: 20190514
  2. SPASMEX (GERMANY) [Concomitant]
     Route: 048
     Dates: start: 20190604, end: 20190612
  3. NEURONTIN [Concomitant]
     Active Substance: GABAPENTIN
     Route: 048
     Dates: start: 201912
  4. LORATADINE. [Concomitant]
     Active Substance: LORATADINE
     Indication: SEASONAL ALLERGY
     Dosage: DEFINITION OF THE INTERVAL: AS REQUIRED
     Route: 048
  5. NATALIZUMAB [Concomitant]
     Active Substance: NATALIZUMAB
     Dates: start: 20170718, end: 20180925
  6. OCRELIZUMAB. [Suspect]
     Active Substance: OCRELIZUMAB
     Indication: RELAPSING MULTIPLE SCLEROSIS
     Route: 042
     Dates: start: 20181120, end: 20181204
  7. NEURONTIN [Concomitant]
     Active Substance: GABAPENTIN
     Route: 048
     Dates: start: 201807, end: 201912
  8. INFLUVAC [Concomitant]
     Active Substance: INFLUENZA VIRUS VACCINE TRIVALENT TYPE A+B
     Indication: IMMUNISATION
     Route: 030
     Dates: start: 20180927, end: 20180927
  9. MICTONORM [Concomitant]
     Active Substance: PROPIVERINE HYDROCHLORIDE
     Indication: NEUROGENIC BLADDER
     Route: 048
     Dates: start: 20190613, end: 20190620
  10. FINGOLIMOD. [Concomitant]
     Active Substance: FINGOLIMOD
     Dates: start: 201608, end: 201705
  11. DEKRISTOL [Concomitant]
     Active Substance: CHOLECALCIFEROL
     Indication: VITAMIN D DEFICIENCY
     Route: 048
     Dates: start: 201610
  12. DIPROGENTA [Concomitant]
     Active Substance: BETAMETHASONE DIPROPIONATE\GENTAMICIN SULFATE
     Indication: NEURODERMATITIS
     Dosage: DEFINITION OF THE INTERVAL: AS REQUIRED
     Route: 061
     Dates: start: 201911
  13. PROPICUM [Concomitant]
     Active Substance: SODIUM PROPIONATE
     Indication: MULTIPLE SCLEROSIS
     Route: 048
     Dates: end: 201908
  14. CIPRALEX [Concomitant]
     Active Substance: ESCITALOPRAM OXALATE
     Indication: BURNOUT SYNDROME
     Route: 048
     Dates: start: 201409
  15. PREDNISOLONE. [Concomitant]
     Active Substance: PREDNISOLONE
     Indication: MULTIPLE SCLEROSIS RELAPSE
     Route: 048
     Dates: start: 20190212, end: 20190214
  16. BOOSTRIX [Concomitant]
     Active Substance: TETANUS TOXOID, REDUCED DIPHTHERIA TOXOID AND ACELLULAR PERTUSSIS VACCINE, ADSORBED ANTIGENS
     Indication: IMMUNISATION
     Route: 030
     Dates: start: 20180927, end: 20180927
  17. AVONEX [Concomitant]
     Active Substance: INTERFERON BETA-1A
     Dates: start: 201306, end: 201402
  18. IBUPROFEN. [Concomitant]
     Active Substance: IBUPROFEN
     Indication: SPINAL PAIN
     Dosage: DEFINITION OF THE INTERVAL: AS REQUIRED
     Route: 048
     Dates: start: 201808
  19. SPASMEX (GERMANY) [Concomitant]
     Indication: NEUROGENIC BLADDER
     Dosage: DEFINITION OF THE INTERVAL: AS REQUIRED
     Route: 048
     Dates: start: 20190604, end: 20190612
  20. NEURONTIN [Concomitant]
     Active Substance: GABAPENTIN
     Route: 048
     Dates: start: 201912
  21. TIZANIDINE. [Concomitant]
     Active Substance: TIZANIDINE
     Indication: SPINAL PAIN
     Route: 048
     Dates: start: 20190115, end: 201902

REACTIONS (1)
  - Onychomycosis [Recovered/Resolved]

NARRATIVE: CASE EVENT DATE: 201911
